FAERS Safety Report 24257639 (Version 1)
Quarter: 2024Q3

REPORT INFORMATION
  Report Type: Spontaneous
  Country: CN (occurrence: None)
  Receive Date: 20240828
  Receipt Date: 20240828
  Transmission Date: 20241016
  Serious: Yes (Hospitalization, Other)
  Sender: ASTRAZENECA
  Company Number: 2024A192299

PATIENT
  Age: 12451 Day
  Sex: Female
  Weight: 88 kg

DRUGS (1)
  1. DAPAGLIFLOZIN [Suspect]
     Active Substance: DAPAGLIFLOZIN
     Indication: Type 2 diabetes mellitus
     Route: 048
     Dates: start: 20240816, end: 20240819

REACTIONS (5)
  - Blood ketone body increased [Recovering/Resolving]
  - Chest discomfort [Unknown]
  - Decreased appetite [Unknown]
  - Asthenia [Unknown]
  - Discomfort [Unknown]

NARRATIVE: CASE EVENT DATE: 20240819
